FAERS Safety Report 8212259-3 (Version None)
Quarter: 2012Q1

REPORT INFORMATION
  Report Type: 
  Country: None (occurrence: None)
  Receive Date: 20120315
  Receipt Date: 20120306
  Transmission Date: 20120608
  Serious: Yes (Other)
  Sender: FDA-Public Use
  Company Number: CA-JNJFOC-20120303950

PATIENT
  Sex: Male
  Weight: 54.5 kg

DRUGS (4)
  1. PANTOPRAZOLE SODIUM [Concomitant]
     Route: 065
  2. LOMOTIL [Concomitant]
     Route: 065
  3. REMICADE [Suspect]
     Indication: CROHN'S DISEASE
     Route: 042
  4. GABAPENTIN [Concomitant]
     Route: 065

REACTIONS (3)
  - WEIGHT DECREASED [None]
  - INFLUENZA [None]
  - GASTROENTERITIS VIRAL [None]
